FAERS Safety Report 9375304 (Version 1)
Quarter: 2013Q2

REPORT INFORMATION
  Report Type: Report from Study
  Country: US (occurrence: US)
  Receive Date: 20130628
  Receipt Date: 20130628
  Transmission Date: 20140414
  Serious: Yes (Hospitalization)
  Sender: FDA-Public Use
  Company Number: US-ACTELION-A-NJ2007-19008

PATIENT
  Age: 64 Year
  Sex: Female

DRUGS (10)
  1. TRACLEER [Suspect]
     Indication: PULMONARY ARTERIAL HYPERTENSION
     Dosage: 125 MG, BID
     Route: 048
     Dates: start: 2003
  2. TRACLEER [Suspect]
     Dosage: 62.5 MG, BID
     Route: 048
     Dates: start: 2013, end: 2013
  3. COUMADIN [Concomitant]
     Dosage: 7.5 MG, UNK
  4. TRAZODONE [Concomitant]
     Dosage: 150 MG, UNK
  5. LIDODERM [Concomitant]
     Dosage: 700 MG, BID
  6. THEOPHYLLINE [Concomitant]
     Dosage: 200 MG, BID
  7. JANUVIA [Concomitant]
     Dosage: 100 MG, BID
  8. LASIX [Concomitant]
  9. ATORVASTATIN [Concomitant]
     Dosage: 20 MG, QD
  10. DIGOXIN [Concomitant]
     Dosage: 12.5 MG, UNK

REACTIONS (20)
  - Insomnia [Not Recovered/Not Resolved]
  - Nodule [Unknown]
  - Speech disorder [Unknown]
  - Urinary tract infection [Unknown]
  - Blood urine present [Unknown]
  - Dysuria [Unknown]
  - Depressed mood [Unknown]
  - Blood glucose decreased [Unknown]
  - Pneumonia [Unknown]
  - Asthenia [Unknown]
  - Dysphagia [Unknown]
  - Fall [Unknown]
  - Skin discolouration [Unknown]
  - Pain in jaw [Unknown]
  - Flatulence [Unknown]
  - International normalised ratio fluctuation [Unknown]
  - Erythema [Unknown]
  - Nasopharyngitis [Unknown]
  - Back pain [Unknown]
  - Pyrexia [Unknown]
